FAERS Safety Report 6695797-4 (Version None)
Quarter: 2010Q2

REPORT INFORMATION
  Report Type: 
  Country: None (occurrence: None)
  Receive Date: 20100421
  Receipt Date: 20100407
  Transmission Date: 20101027
  Serious: Yes (Hospitalization)
  Sender: FDA-Public Use
  Company Number: SPV1-2010-00643

PATIENT
  Age: 13 Year
  Sex: Male

DRUGS (6)
  1. ELAPRASE [Suspect]
     Indication: HYPOTENSION
     Dosage: 0.5 MG/KG, 1X/WEEK, IV DRIP
     Route: 041
     Dates: start: 20100101
  2. ELAPRASE [Suspect]
     Indication: INFUSION RELATED REACTION
     Dosage: 0.5 MG/KG, 1X/WEEK, IV DRIP
     Route: 041
     Dates: start: 20100101
  3. POLARAMINE [Concomitant]
  4. RANITIDINE [Concomitant]
  5. PARACETAMOL [Concomitant]
  6. CORTICOSTEROIDS [Concomitant]

REACTIONS (4)
  - BRONCHOSPASM [None]
  - HYPOTENSION [None]
  - INFUSION RELATED REACTION [None]
  - PYREXIA [None]
